FAERS Safety Report 16667193 (Version 1)
Quarter: 2019Q3

REPORT INFORMATION
  Report Type: Spontaneous
  Country: US (occurrence: US)
  Receive Date: 20190805
  Receipt Date: 20190805
  Transmission Date: 20191004
  Serious: No
  Sender: FDA-Public Use
  Company Number: US-GLAXOSMITHKLINE-US2019136616

PATIENT
  Age: 64 Year
  Sex: Female

DRUGS (2)
  1. ABREVA [Suspect]
     Active Substance: DOCOSANOL
     Dosage: UNK, (NOT DAILY NOT 5 TIMES)
     Route: 061
     Dates: start: 20190717
  2. ABREVA [Suspect]
     Active Substance: DOCOSANOL
     Indication: SUNBURN
     Dosage: UNK
     Route: 061
     Dates: start: 20190717

REACTIONS (7)
  - Adverse drug reaction [Not Recovered/Not Resolved]
  - Oral discomfort [Recovered/Resolved]
  - Application site reaction [Not Recovered/Not Resolved]
  - Inappropriate schedule of product administration [Not Recovered/Not Resolved]
  - Product use in unapproved indication [Not Recovered/Not Resolved]
  - Wrong technique in product usage process [Unknown]
  - Lip pain [Not Recovered/Not Resolved]
